FAERS Safety Report 10340654 (Version 1)
Quarter: 2014Q3

REPORT INFORMATION
  Report Type: Spontaneous
  Country: US (occurrence: US)
  Receive Date: 20140724
  Receipt Date: 20140724
  Transmission Date: 20150326
  Serious: No
  Sender: FDA-Public Use
  Company Number: US-GILEAD-2014-0109816

PATIENT
  Age: 25 Year
  Sex: Female

DRUGS (1)
  1. LETAIRIS [Suspect]
     Active Substance: AMBRISENTAN
     Indication: PULMONARY HYPERTENSION
     Dosage: 10 MG, QD
     Route: 065
     Dates: start: 20120608

REACTIONS (4)
  - Dizziness [Unknown]
  - Chest pain [Unknown]
  - Dyspnoea [Unknown]
  - Dizziness [Unknown]

NARRATIVE: CASE EVENT DATE: 20140710
